FAERS Safety Report 15007104 (Version 1)
Quarter: 2018Q2

REPORT INFORMATION
  Report Type: Spontaneous
  Country: CA (occurrence: CA)
  Receive Date: 20180526
  Receipt Date: 20180526
  Transmission Date: 20180711
  Serious: Yes (Disabling)
  Sender: FDA-Public Use
  Company Number: None

PATIENT
  Age: 62 Year
  Sex: Male
  Weight: 117 kg

DRUGS (9)
  1. SYNTHROID [Concomitant]
     Active Substance: LEVOTHYROXINE SODIUM
  2. PRO-BISOPROLOL [Concomitant]
  3. IRBESARTAN. [Concomitant]
     Active Substance: IRBESARTAN
  4. BRILINTA [Concomitant]
     Active Substance: TICAGRELOR
  5. ROSUVASTATIN. [Concomitant]
     Active Substance: ROSUVASTATIN
  6. PRO AAS EC [Concomitant]
  7. VENLAFAXINE XR [Concomitant]
     Active Substance: VENLAFAXINE HYDROCHLORIDE
  8. SANDOZ QUETIAPINE XRT 50MG [Suspect]
     Active Substance: QUETIAPINE
     Indication: ANXIETY
     Dosage: ?          QUANTITY:2 DF DOSAGE FORM;?
     Route: 048
  9. QUETIAPINE. [Concomitant]
     Active Substance: QUETIAPINE

REACTIONS (1)
  - Enuresis [None]

NARRATIVE: CASE EVENT DATE: 20180526
